APPROVED DRUG PRODUCT: CYCLESSA
Active Ingredient: DESOGESTREL; ETHINYL ESTRADIOL
Strength: 0.1MG,0.125MG,0.15MG;0.025MG,0.025MG,0.025MG
Dosage Form/Route: TABLET;ORAL-28
Application: N021090 | Product #001 | TE Code: AB
Applicant: ASPEN GLOBAL INC
Approved: Dec 20, 2000 | RLD: Yes | RS: Yes | Type: RX